FAERS Safety Report 9624609 (Version 2)
Quarter: 2013Q4

REPORT INFORMATION
  Report Type: Spontaneous
  Country: JP (occurrence: JP)
  Receive Date: 20131015
  Receipt Date: 20131107
  Transmission Date: 20140711
  Serious: Yes (Other)
  Sender: FDA-Public Use
  Company Number: JP-JHP PHARMACEUTICALS, LLC-JHP201300611

PATIENT
  Age: 60 Year
  Sex: Female

DRUGS (1)
  1. DANTRIUM [Suspect]

REACTIONS (1)
  - Epilepsy [Recovered/Resolved]
